FAERS Safety Report 8276880-9 (Version None)
Quarter: 2012Q2

REPORT INFORMATION
  Report Type: 
  Country: None (occurrence: None)
  Receive Date: 20120412
  Receipt Date: 20120409
  Transmission Date: 20120825
  Serious: Yes (Other)
  Sender: FDA-Public Use
  Company Number: US-PFIZER INC-2012088556

PATIENT
  Sex: Male
  Weight: 79.365 kg

DRUGS (3)
  1. XANAX XR [Suspect]
     Dosage: UNK
     Route: 048
  2. XANAX XR [Suspect]
     Indication: ANXIETY
     Dosage: 2 MG, 3X/DAY
     Route: 048
  3. NIASPAN [Concomitant]
     Indication: BLOOD CHOLESTEROL INCREASED
     Dosage: 1000 MG, 2X/DAY

REACTIONS (3)
  - NORMAL PRESSURE HYDROCEPHALUS [None]
  - GASTROOESOPHAGEAL REFLUX DISEASE [None]
  - ABNORMAL CLOTTING FACTOR [None]
